FAERS Safety Report 10670471 (Version 5)
Quarter: 2015Q2

REPORT INFORMATION
  Report Type: Spontaneous
  Country: US (occurrence: US)
  Receive Date: 20141223
  Receipt Date: 20150528
  Transmission Date: 20150821
  Serious: Yes (Death, Hospitalization, Other)
  Sender: FDA-Public Use
  Company Number: US-009507513-1412USA010305

PATIENT
  Sex: Female
  Weight: 84.35 kg

DRUGS (1)
  1. JANUVIA [Suspect]
     Active Substance: SITAGLIPTIN PHOSPHATE
     Indication: TYPE 2 DIABETES MELLITUS
     Dosage: 50-100MG DAILY
     Route: 048
     Dates: start: 20090729, end: 20121003

REACTIONS (24)
  - Hyperglycaemia [Not Recovered/Not Resolved]
  - Mixed dementia [Unknown]
  - Renal cyst [Unknown]
  - Hepatic cyst [Unknown]
  - Cholelithiasis [Unknown]
  - Pancreatic carcinoma metastatic [Fatal]
  - Metastases to liver [Unknown]
  - Renal mass [Unknown]
  - Cholestasis [Unknown]
  - Arteriosclerosis [Unknown]
  - Transaminases increased [Unknown]
  - Hiatus hernia [Unknown]
  - Blindness [Not Recovered/Not Resolved]
  - Diabetic retinopathy [Unknown]
  - Hypertension [Not Recovered/Not Resolved]
  - Gallbladder disorder [Not Recovered/Not Resolved]
  - Osteoporosis [Unknown]
  - Lymphoedema [Unknown]
  - Fall [Unknown]
  - Urinary tract infection [Unknown]
  - Polyp [Unknown]
  - Oedema peripheral [Unknown]
  - Hepatic enzyme increased [Unknown]
  - Abdominal pain [Recovered/Resolved]

NARRATIVE: CASE EVENT DATE: 20100415
